FAERS Safety Report 15499803 (Version 1)
Quarter: 2018Q4

REPORT INFORMATION
  Report Type: Spontaneous
  Country: JP (occurrence: JP)
  Receive Date: 20181015
  Receipt Date: 20181015
  Transmission Date: 20190205
  Serious: Yes (Hospitalization, Other)
  Sender: FDA-Public Use
  Company Number: JP-GLAXOSMITHKLINE-JP2018183964

PATIENT
  Age: 61 Year
  Sex: Male

DRUGS (1)
  1. DICLOFENAC [Suspect]
     Active Substance: DICLOFENAC
     Indication: BACK PAIN
     Dosage: UNK
     Route: 062

REACTIONS (6)
  - Proteinuria [Unknown]
  - Nephrotic syndrome [Unknown]
  - Dyspnoea [Unknown]
  - Oedema peripheral [Unknown]
  - Renal tubular necrosis [Unknown]
  - Erythema [Unknown]
